FAERS Safety Report 24630992 (Version 1)
Quarter: 2024Q4

REPORT INFORMATION
  Report Type: Spontaneous
  Country: US (occurrence: None)
  Receive Date: 20241116
  Receipt Date: 20241116
  Transmission Date: 20250115
  Serious: Yes (Disabling)
  Sender: Public
  Company Number: None

PATIENT
  Age: 70 Year
  Sex: Female
  Weight: 66.6 kg

DRUGS (8)
  1. PROLIA [Suspect]
     Active Substance: DENOSUMAB
     Indication: Osteoporosis
     Dosage: OTHER QUANTITY : .5 ML;?OTHER FREQUENCY : EVERY 6 MO SUB Q;?
     Route: 058
     Dates: start: 20231015, end: 20241101
  2. Lipator Epipen [Concomitant]
  3. VITAMINS [Concomitant]
     Active Substance: VITAMINS
  4. CALCIUM [Concomitant]
  5. turmeric [Concomitant]
  6. probiotic [Concomitant]
  7. FLAXSEED [Concomitant]
     Active Substance: FLAX SEED
  8. VITAMIN D NOS [Suspect]
     Active Substance: CHOLECALCIFEROL\ERGOCALCIFEROL

REACTIONS (9)
  - Arthralgia [None]
  - Back pain [None]
  - Arthralgia [None]
  - Fall [None]
  - Weight bearing difficulty [None]
  - Gait disturbance [None]
  - Paraesthesia [None]
  - Drug ineffective [None]
  - Loss of personal independence in daily activities [None]

NARRATIVE: CASE EVENT DATE: 20241101
